FAERS Safety Report 5319294-3 (Version None)
Quarter: 2007Q2

REPORT INFORMATION
  Report Type: 
  Country: None (occurrence: None)
  Receive Date: 20070508
  Receipt Date: 20070427
  Transmission Date: 20071010
  Serious: Yes (Other)
  Sender: FDA-Public Use
  Company Number: US-PFIZER INC-2007001494

PATIENT
  Sex: Female
  Weight: 65.8 kg

DRUGS (3)
  1. XALATAN [Suspect]
     Indication: INTRAOCULAR PRESSURE INCREASED
     Route: 047
     Dates: start: 20040819, end: 20050916
  2. XALATAN [Suspect]
     Indication: OCULAR HYPERTENSION
  3. TRAVATAN [Suspect]
     Indication: OCULAR HYPERTENSION
     Route: 047

REACTIONS (1)
  - UPPER LIMB FRACTURE [None]
